FAERS Safety Report 5928344-2 (Version None)
Quarter: 2008Q4

REPORT INFORMATION
  Report Type: 
  Country: None (occurrence: None)
  Receive Date: 20081023
  Receipt Date: 20081015
  Transmission Date: 20090506
  Serious: Yes (Other)
  Sender: FDA-Public Use
  Company Number: BR-PFIZER INC-2007067240

PATIENT
  Sex: Female
  Weight: 67 kg

DRUGS (5)
  1. CITALOR [Suspect]
     Indication: BLOOD CHOLESTEROL INCREASED
     Route: 048
     Dates: start: 20030101
  2. SANDRENA [Concomitant]
     Route: 061
  3. EUTHYROX [Concomitant]
     Route: 048
  4. CLORANA [Concomitant]
     Route: 048
  5. LOSARTAN [Concomitant]
     Route: 048

REACTIONS (7)
  - ANXIETY [None]
  - DIABETES MELLITUS [None]
  - HEADACHE [None]
  - HEART RATE INCREASED [None]
  - HEART RATE IRREGULAR [None]
  - HIGH DENSITY LIPOPROTEIN DECREASED [None]
  - INSOMNIA [None]
